FAERS Safety Report 8532710-9 (Version None)
Quarter: 2012Q3

REPORT INFORMATION
  Report Type: 
  Country: None (occurrence: None)
  Receive Date: 20120724
  Receipt Date: 20120719
  Transmission Date: 20120928
  Serious: Yes (Other)
  Sender: FDA-Public Use
  Company Number: PHHY2012IN062101

PATIENT
  Age: 48 Year
  Sex: Male

DRUGS (2)
  1. SOMPRAZ-D [Concomitant]
  2. SEBIVO [Suspect]
     Indication: HEPATITIS
     Dosage: 600 MG, UNK
     Route: 048
     Dates: start: 20111101, end: 20120401

REACTIONS (2)
  - HEPATIC INFECTION [None]
  - DYSPEPSIA [None]
